FAERS Safety Report 4761213-2 (Version None)
Quarter: 2005Q3

REPORT INFORMATION
  Report Type: 
  Country: None (occurrence: None)
  Receive Date: 20050901
  Receipt Date: 20050524
  Transmission Date: 20060218
  Serious: No
  Sender: FDA-Public Use
  Company Number: 2005FR-00231

PATIENT
  Age: 31 Year
  Sex: Female

DRUGS (1)
  1. PARACETAMOL [Suspect]

REACTIONS (2)
  - HEPATIC FAILURE [None]
  - OVERDOSE [None]
